FAERS Safety Report 25938052 (Version 1)
Quarter: 2025Q4

REPORT INFORMATION
  Report Type: Spontaneous
  Country: US (occurrence: US)
  Receive Date: 20251018
  Receipt Date: 20251018
  Transmission Date: 20260117
  Serious: No
  Sender: NOVARTIS
  Company Number: US-002147023-NVSC2025US158138

PATIENT

DRUGS (1)
  1. LEQVIO [Suspect]
     Active Substance: INCLISIRAN SODIUM
     Indication: Low density lipoprotein increased
     Dosage: 284 MG/KG (1 DOSE, THEN MONTH 3 THEN MONTH 6.AS SCHEDULED)
     Route: 058
     Dates: start: 20241212, end: 20251010

REACTIONS (2)
  - Rash [Unknown]
  - Myalgia [Unknown]
